FAERS Safety Report 5449303-2 (Version None)
Quarter: 2007Q3

REPORT INFORMATION
  Report Type: 
  Country: None (occurrence: None)
  Receive Date: 20070907
  Receipt Date: 20070829
  Transmission Date: 20080115
  Serious: Yes (Life-Threatening, Hospitalization)
  Sender: FDA-Public Use
  Company Number: GXKR2007GB07478

PATIENT
  Age: 16 Year
  Sex: Female

DRUGS (1)
  1. CO-CODAMOL (NGX) (ACETAMINOPHEN(PARACETAMOL), CODEINE PHOSPHATE) UNKNO [Suspect]
     Dosage: 30 DF, ORAL
     Route: 048
     Dates: start: 20070718

REACTIONS (3)
  - INTENTIONAL OVERDOSE [None]
  - PRURITUS GENERALISED [None]
  - URTICARIA [None]
